FAERS Safety Report 8537925-1 (Version None)
Quarter: 2012Q3

REPORT INFORMATION
  Report Type: 
  Country: None (occurrence: None)
  Receive Date: 20120725
  Receipt Date: 20120717
  Transmission Date: 20120928
  Serious: Yes (Hospitalization)
  Sender: FDA-Public Use
  Company Number: JP-GLAXOSMITHKLINE-B0816022A

PATIENT
  Sex: Female
  Weight: 46 kg

DRUGS (22)
  1. ADCIRCA [Suspect]
     Indication: PULMONARY ARTERIAL HYPERTENSION
     Route: 048
     Dates: start: 20101224
  2. ENTOMOL [Concomitant]
     Indication: DIARRHOEA
     Route: 048
     Dates: start: 20110127
  3. VOLIBRIS [Suspect]
     Indication: PULMONARY ARTERIAL HYPERTENSION
     Dosage: 5MG PER DAY
     Route: 048
     Dates: start: 20101214, end: 20110108
  4. FLOLAN [Suspect]
     Route: 042
     Dates: start: 20110204, end: 20110205
  5. MUCODYNE [Concomitant]
     Indication: COUGH
     Route: 048
     Dates: start: 20110117, end: 20110130
  6. SULFAMETHOXAZOLE AND TRIMETHOPRIM [Concomitant]
     Indication: INFECTION PROPHYLAXIS
     Route: 048
     Dates: start: 20110224
  7. FAMOTIDINE [Concomitant]
     Indication: PROPHYLAXIS AGAINST GASTROINTESTINAL ULCER
     Route: 048
     Dates: start: 20101217
  8. FAMOTIDINE [Concomitant]
     Route: 042
     Dates: start: 20101213, end: 20101216
  9. VOLIBRIS [Suspect]
     Dosage: 7.5MG PER DAY
     Route: 048
     Dates: start: 20110109
  10. WARFARIN SODIUM [Concomitant]
     Route: 048
     Dates: start: 20101224, end: 20110124
  11. FLOLAN [Suspect]
     Indication: PULMONARY ARTERIAL HYPERTENSION
     Route: 042
     Dates: start: 20101211, end: 20101212
  12. FLOLAN [Suspect]
     Route: 042
     Dates: start: 20101216, end: 20101220
  13. FLOLAN [Suspect]
     Route: 042
     Dates: start: 20101230, end: 20110120
  14. FLOLAN [Suspect]
     Route: 042
     Dates: start: 20110120, end: 20110204
  15. HEPARIN SODIUM [Concomitant]
     Indication: THROMBOSIS PROPHYLAXIS
     Route: 042
     Dates: start: 20101211, end: 20110114
  16. FLOLAN [Suspect]
     Route: 042
     Dates: start: 20101212, end: 20101216
  17. MEDICON [Concomitant]
     Indication: COUGH
     Route: 048
     Dates: start: 20110117, end: 20110130
  18. ALENDRONATE SODIUM [Concomitant]
     Indication: OSTEOPOROSIS PROPHYLAXIS
     Route: 048
     Dates: start: 20110224
  19. FLOLAN [Suspect]
     Route: 042
     Dates: start: 20110205, end: 20110210
  20. DEPAS [Concomitant]
     Indication: ANXIETY
     Route: 048
     Dates: start: 20101223
  21. FLOLAN [Suspect]
     Route: 042
     Dates: start: 20101220, end: 20101230
  22. FLOLAN [Suspect]
     Route: 042
     Dates: start: 20110210

REACTIONS (1)
  - PNEUMONIA [None]
